FAERS Safety Report 6473253 (Version 16)
Quarter: 2012Q4

REPORT INFORMATION
  Report Type: 
  Country: US (occurrence: US)
  Receive Date: 20071121
  Receipt Date: 20121227
  Transmission Date: 20130627
  Serious: Yes (Life-Threatening, Hospitalization, Congenital Anomaly, Other)
  Sender: FDA-Public Use
  Company Number: US-PFIZER INC-2007095398

PATIENT
  Sex: Female
  Weight: 3 kg

DRUGS (6)
  1. ZOLOFT [Suspect]
     Indication: POSTPARTUM DEPRESSION
     Dosage: 50 mg, 1x/day
     Route: 064
     Dates: start: 200410, end: 2006
  2. VICODIN [Concomitant]
     Indication: ONYCHOCRYPTOSIS
     Route: 064
     Dates: start: 200507
  3. VICODIN [Concomitant]
     Indication: PARONYCHIA
  4. TYLENOL [Concomitant]
     Dosage: UNK
     Route: 064
  5. MAALOX [Concomitant]
     Dosage: UNK
     Route: 064
  6. PRENATAL VITAMINS [Concomitant]
     Dosage: UNK
     Route: 064

REACTIONS (27)
  - Foetal exposure during pregnancy [Unknown]
  - Congenital anomaly [Unknown]
  - Double outlet right ventricle [Unknown]
  - Ventricular septal defect [Unknown]
  - Cyanosis [Recovered/Resolved]
  - Dyspnoea [Unknown]
  - Ventricular hypoplasia [Unknown]
  - Congenital heart valve disorder [Unknown]
  - Pulmonary valve stenosis [Unknown]
  - Aortic disorder [Unknown]
  - Dysphagia [Recovered/Resolved]
  - Laryngeal stenosis [Recovered/Resolved]
  - Psychomotor skills impaired [Recovering/Resolving]
  - Congenital aortic stenosis [Unknown]
  - Patent ductus arteriosus [Unknown]
  - Hypoplastic right heart syndrome [Unknown]
  - Transposition of the great vessels [Unknown]
  - Atrial septal defect [Unknown]
  - Pulmonary hypertension [Recovered/Resolved]
  - Hypertension [Recovering/Resolving]
  - Ventricular septal defect [Unknown]
  - Speech disorder developmental [Recovering/Resolving]
  - Irritability [Unknown]
  - Body temperature increased [Unknown]
  - Influenza like illness [Unknown]
  - Discomfort [Unknown]
  - Aortic valve incompetence [Unknown]
